FAERS Safety Report 5637540-3 (Version None)
Quarter: 2008Q1

REPORT INFORMATION
  Report Type: 
  Country: None (occurrence: None)
  Receive Date: 20080219
  Receipt Date: 20080205
  Transmission Date: 20080703
  Serious: Yes (Other)
  Sender: FDA-Public Use
  Company Number: 2008S1001965

PATIENT
  Age: 44 Year
  Sex: Female
  Weight: 79.8331 kg

DRUGS (7)
  1. AMITRIPTYLINE HYDROCHLORIDE [Suspect]
     Indication: DEPRESSION
     Dosage: 75 MG; AT BEDTIME; ORAL
     Route: 048
     Dates: start: 19990101, end: 20080204
  2. AMITRIPTYLINE HYDROCHLORIDE [Suspect]
     Indication: PAIN
     Dosage: 75 MG; AT BEDTIME; ORAL
     Route: 048
     Dates: start: 19990101, end: 20080204
  3. ESOMEPRAZOLE MAGNESIUM [Concomitant]
  4. ALLEGRA D 24 HOUR [Concomitant]
  5. ALLEGRA-D 12 HOUR [Concomitant]
  6. MULTIVITAMIN /00831701/ [Concomitant]
  7. IBUPROFEN [Concomitant]

REACTIONS (4)
  - BLOOD PRESSURE INCREASED [None]
  - DRUG HYPERSENSITIVITY [None]
  - DYSPHAGIA [None]
  - THROAT IRRITATION [None]
